FAERS Safety Report 16761513 (Version 2)
Quarter: 2019Q3

REPORT INFORMATION
  Report Type: Spontaneous
  Country: SE (occurrence: SE)
  Receive Date: 20190830
  Receipt Date: 20190926
  Transmission Date: 20191005
  Serious: Yes (Other)
  Sender: FDA-Public Use
  Company Number: SE-ROCHE-2398468

PATIENT
  Age: 39 Year
  Sex: Female

DRUGS (7)
  1. MABTHERA [Suspect]
     Active Substance: RITUXIMAB
     Indication: HAIRY CELL LEUKAEMIA
     Route: 065
     Dates: start: 20180716, end: 20180716
  2. RITEMVIA [Suspect]
     Active Substance: RITUXIMAB
     Route: 065
     Dates: start: 20190513, end: 20190513
  3. MABTHERA [Suspect]
     Active Substance: RITUXIMAB
     Route: 065
     Dates: start: 20180730, end: 20180730
  4. MABTHERA [Suspect]
     Active Substance: RITUXIMAB
     Route: 065
     Dates: start: 20180806, end: 20180806
  5. RITEMVIA [Suspect]
     Active Substance: RITUXIMAB
     Route: 065
     Dates: start: 20181119, end: 20181119
  6. MABTHERA [Suspect]
     Active Substance: RITUXIMAB
     Route: 065
     Dates: start: 20180723, end: 20180723
  7. RITEMVIA [Suspect]
     Active Substance: RITUXIMAB
     Indication: HAIRY CELL LEUKAEMIA
     Route: 065
     Dates: start: 20190218, end: 20190218

REACTIONS (2)
  - Face oedema [Unknown]
  - Arthralgia [Unknown]

NARRATIVE: CASE EVENT DATE: 2019
